FAERS Safety Report 5638116-4 (Version None)
Quarter: 2008Q1

REPORT INFORMATION
  Report Type: 
  Country: None (occurrence: None)
  Receive Date: 20080221
  Receipt Date: 20080208
  Transmission Date: 20080703
  Serious: Yes (Death, Hospitalization)
  Sender: FDA-Public Use
  Company Number: 2008S1000526

PATIENT
  Age: 41 Year
  Sex: Male
  Weight: 68.9467 kg

DRUGS (2)
  1. KETOCONAZOLE [Suspect]
     Indication: TINEA VERSICOLOUR
     Dosage: 400 MG; X1; ORAL
     Route: 048
     Dates: start: 20070304, end: 20070304
  2. KETOCONAZOLE [Suspect]
     Indication: TINEA VERSICOLOUR
     Dosage: 400 MG; X1; ORAL
     Route: 048
     Dates: start: 20070311, end: 20070311

REACTIONS (6)
  - COMPLETED SUICIDE [None]
  - DEPRESSION [None]
  - GUN SHOT WOUND [None]
  - HEAD INJURY [None]
  - INSOMNIA [None]
  - SUICIDAL IDEATION [None]
